FAERS Safety Report 8157420-1 (Version None)
Quarter: 2012Q1

REPORT INFORMATION
  Report Type: 
  Country: None (occurrence: None)
  Receive Date: 20120222
  Receipt Date: 20120221
  Transmission Date: 20120608
  Serious: No
  Sender: FDA-Public Use
  Company Number: US-PFIZER INC-2011123699

PATIENT
  Sex: Female
  Weight: 65.306 kg

DRUGS (5)
  1. VERAPAMIL [Concomitant]
     Dosage: UNK
  2. BENICAR [Concomitant]
     Dosage: UNK
  3. LYRICA [Suspect]
     Indication: NEUROPATHY PERIPHERAL
     Dosage: 100 MG, AS NEEDED
     Route: 048
     Dates: end: 20120220
  4. TRICOR [Concomitant]
     Dosage: UNK
  5. PLAVIX [Concomitant]
     Dosage: UNK

REACTIONS (1)
  - PAIN [None]
